FAERS Safety Report 5162915-9 (Version None)
Quarter: 2006Q4

REPORT INFORMATION
  Report Type: 
  Country: None (occurrence: None)
  Receive Date: 20061201
  Receipt Date: 20061127
  Transmission Date: 20070319
  Serious: Yes (Death)
  Sender: FDA-Public Use
  Company Number: US-MERCK-0611USA07071

PATIENT
  Age: 70 Year
  Sex: Female

DRUGS (2)
  1. ZOLINZA [Suspect]
     Route: 048
  2. [THERAPY UNSPECIFIED] [Concomitant]
     Route: 065

REACTIONS (3)
  - DEATH [None]
  - DIARRHOEA [None]
  - FATIGUE [None]
